FAERS Safety Report 11616367 (Version 1)
Quarter: 2015Q4

REPORT INFORMATION
  Report Type: Spontaneous
  Country: US (occurrence: US)
  Receive Date: 20151009
  Receipt Date: 20151009
  Transmission Date: 20160304
  Serious: No
  Sender: FDA-Public Use
  Company Number: US-BAYER-2015-434714

PATIENT
  Age: 86 Year
  Sex: Female
  Weight: 74.83 kg

DRUGS (13)
  1. POTASSIUM CHLORIDE. [Concomitant]
     Active Substance: POTASSIUM CHLORIDE
  2. LINZESS [Concomitant]
     Active Substance: LINACLOTIDE
  3. LIPITOR [Concomitant]
     Active Substance: ATORVASTATIN CALCIUM
  4. TOPROL XL [Concomitant]
     Active Substance: METOPROLOL SUCCINATE
  5. COLACE [Concomitant]
     Active Substance: DOCUSATE SODIUM
  6. DRONEDARONE [Concomitant]
     Active Substance: DRONEDARONE
  7. NORVASC [Concomitant]
     Active Substance: AMLODIPINE BESYLATE
  8. ALPHAGAN P [Concomitant]
     Active Substance: BRIMONIDINE TARTRATE
  9. DIOVAN [Concomitant]
     Active Substance: VALSARTAN
  10. BAYER LOW DOSE [Concomitant]
     Active Substance: ASPIRIN
     Indication: MYOCARDIAL INFARCTION
  11. CLARITIN [Concomitant]
     Active Substance: LORATADINE
  12. LYRICA [Concomitant]
     Active Substance: PREGABALIN
  13. MIRALAX [Suspect]
     Active Substance: POLYETHYLENE GLYCOL 3350
     Indication: CONSTIPATION
     Dosage: 1 DF, QD
     Route: 048
     Dates: start: 2012

REACTIONS (4)
  - Product quality issue [None]
  - Abdominal pain [Recovered/Resolved]
  - Abdominal discomfort [Recovered/Resolved]
  - Product use issue [None]

NARRATIVE: CASE EVENT DATE: 2012
